FAERS Safety Report 21288089 (Version 1)
Quarter: 2022Q3

REPORT INFORMATION
  Report Type: Spontaneous
  Country: US (occurrence: US)
  Receive Date: 20220902
  Receipt Date: 20220902
  Transmission Date: 20221027
  Serious: No
  Sender: FDA-Public Use
  Company Number: US-ABBVIE-22K-163-4481518-00

PATIENT
  Age: 43 Year
  Sex: Female

DRUGS (1)
  1. LUPRON [Suspect]
     Active Substance: LEUPROLIDE ACETATE
     Indication: Endometriosis
     Route: 030
     Dates: start: 20220629

REACTIONS (2)
  - Heavy menstrual bleeding [Not Recovered/Not Resolved]
  - Premenstrual pain [Not Recovered/Not Resolved]

NARRATIVE: CASE EVENT DATE: 20220711
